FAERS Safety Report 8197257-0 (Version None)
Quarter: 2012Q1

REPORT INFORMATION
  Report Type: 
  Country: None (occurrence: None)
  Receive Date: 20120309
  Receipt Date: 20120229
  Transmission Date: 20120608
  Serious: Yes (Hospitalization)
  Sender: FDA-Public Use
  Company Number: NL-JNJFOC-20080303182

PATIENT
  Sex: Female
  Weight: 70 kg

DRUGS (10)
  1. REMICADE [Suspect]
     Route: 042
     Dates: start: 20050816
  2. REMICADE [Suspect]
     Route: 042
     Dates: start: 20051229
  3. REMICADE [Suspect]
     Route: 042
     Dates: start: 20070502
  4. REMICADE [Suspect]
     Route: 042
     Dates: start: 20051011
  5. REMICADE [Suspect]
     Route: 042
     Dates: start: 20070416
  6. FOLIC ACID [Concomitant]
     Indication: CROHN'S DISEASE
  7. ACTONEL [Concomitant]
     Indication: OSTEOPOROSIS PROPHYLAXIS
  8. REMICADE [Suspect]
     Indication: CROHN'S DISEASE
     Route: 042
     Dates: start: 20050720
  9. ENTOCORT EC [Concomitant]
     Indication: CROHN'S DISEASE
  10. CALCIUM CARBONATE [Concomitant]
     Indication: OSTEOPOROSIS PROPHYLAXIS

REACTIONS (7)
  - DRUG HYPERSENSITIVITY [None]
  - INFECTIOUS PERITONITIS [None]
  - SOPOR [None]
  - ADHESION [None]
  - INTESTINAL RESECTION [None]
  - CAECUM OPERATION [None]
  - ENTEROSTOMY [None]
